FAERS Safety Report 11003732 (Version 1)
Quarter: 2015Q2

REPORT INFORMATION
  Report Type: Spontaneous
  Country: US (occurrence: US)
  Receive Date: 20150409
  Receipt Date: 20150409
  Transmission Date: 20150821
  Serious: No
  Sender: FDA-Public Use
  Company Number: US-ASTRAZENECA-2015SE32568

PATIENT
  Age: 847 Month
  Sex: Male
  Weight: 90.7 kg

DRUGS (5)
  1. CRESTOR [Suspect]
     Active Substance: ROSUVASTATIN CALCIUM
     Indication: BLOOD CHOLESTEROL ABNORMAL
     Route: 048
     Dates: start: 20150306
  2. ULORIC [Concomitant]
     Active Substance: FEBUXOSTAT
     Indication: RENAL DISORDER
     Route: 048
  3. HCTZ [Concomitant]
     Active Substance: HYDROCHLOROTHIAZIDE
     Route: 048
  4. LISINOPRIL. [Suspect]
     Active Substance: LISINOPRIL
     Route: 048
  5. GEMFIBROZIL. [Suspect]
     Active Substance: GEMFIBROZIL
     Route: 048

REACTIONS (2)
  - Dizziness [Not Recovered/Not Resolved]
  - Nocturia [Not Recovered/Not Resolved]

NARRATIVE: CASE EVENT DATE: 201504
